FAERS Safety Report 8891155 (Version 1)
Quarter: 2012Q4

REPORT INFORMATION
  Report Type: 
  Country: CH (occurrence: CH)
  Receive Date: 20121107
  Receipt Date: 20121107
  Transmission Date: 20130627
  Serious: Yes (Hospitalization, Other)
  Sender: FDA-Public Use
  Company Number: PHHY2012CH100963

PATIENT
  Age: 78 Year
  Sex: Male

DRUGS (2)
  1. OLFEN [Suspect]
     Indication: BACK PAIN
     Dosage: 1 DF per day
     Route: 048
     Dates: start: 20120909, end: 20120916
  2. AMILORIDE HYDROCHLORIDE AND HYDROCHLOROTHIAZIDE [Suspect]
     Dosage: 25 mg hydrochlorothiazide / 2.5 mg amiloride, 1 DF per day
     Route: 048
     Dates: start: 20120923, end: 20120928

REACTIONS (8)
  - Renal failure acute [Unknown]
  - Oedema peripheral [Unknown]
  - Nausea [Unknown]
  - Vomiting [Unknown]
  - Hyperkalaemia [Unknown]
  - Metabolic acidosis [Unknown]
  - Dehydration [Unknown]
  - Pyrexia [Unknown]
